APPROVED DRUG PRODUCT: AQVESME
Active Ingredient: MITAPIVAT SULFATE
Strength: EQ 100MG BASE
Dosage Form/Route: TABLET;ORAL
Application: N216196 | Product #004
Applicant: AGIOS PHARMACEUTICALS INC
Approved: Dec 23, 2025 | RLD: Yes | RS: Yes | Type: RX

PATENTS:
Patent 11878049 | Expires: Jul 31, 2041
Patent 10632114 | Expires: May 3, 2032
Patent 9682080 | Expires: May 3, 2032
Patent 9193701 | Expires: Oct 26, 2032
Patent RE49582 | Expires: Feb 24, 2031
Patent 11254652 | Expires: Nov 21, 2038